FAERS Safety Report 8190520-9 (Version None)
Quarter: 2012Q1

REPORT INFORMATION
  Report Type: 
  Country: None (occurrence: None)
  Receive Date: 20120307
  Receipt Date: 20120229
  Transmission Date: 20120608
  Serious: Yes (Other)
  Sender: FDA-Public Use
  Company Number: US-BAYER-2012-019758

PATIENT
  Age: 77 Year
  Sex: Female
  Weight: 64 kg

DRUGS (5)
  1. ASPIRIN [Concomitant]
  2. PHILLIPS' LIQUID GELS STOOL SOFTENER [Suspect]
     Dosage: 1 DF, ONCE
     Route: 048
  3. BENAZEPRIL HYDROCHLORIDE [Concomitant]
  4. PRAVASTATIN [Concomitant]
  5. CARVEDILOL [Concomitant]

REACTIONS (3)
  - ANXIETY [None]
  - ABDOMINAL PAIN [None]
  - DIARRHOEA [None]
